FAERS Safety Report 20521259 (Version 1)
Quarter: 2022Q1

REPORT INFORMATION
  Report Type: Report from Study
  Country: US (occurrence: None)
  Receive Date: 20220226
  Receipt Date: 20220226
  Transmission Date: 20220424
  Serious: Yes (Other)
  Sender: FDA-Public Use
  Company Number: US-ROCHE-3032016

PATIENT

DRUGS (1)
  1. ATEZOLIZUMAB [Suspect]
     Active Substance: ATEZOLIZUMAB
     Indication: Colon cancer
     Dosage: AS PER PROTOCOL.
     Route: 041

REACTIONS (4)
  - Nausea [Unknown]
  - Vomiting [Unknown]
  - Adrenal insufficiency [Unknown]
  - Dehydration [Unknown]

NARRATIVE: CASE EVENT DATE: 20220108
